FAERS Safety Report 15366234 (Version 1)
Quarter: 2018Q3

REPORT INFORMATION
  Report Type: Spontaneous
  Country: US (occurrence: US)
  Receive Date: 20180831
  Receipt Date: 20180831
  Transmission Date: 20181010
  Serious: Yes (Other)
  Sender: FDA-Public Use
  Company Number: None

PATIENT
  Age: 70 Year
  Sex: Female
  Weight: 45 kg

DRUGS (9)
  1. PROPRANOLOL 10MG [Concomitant]
  2. PRILOSEC [Concomitant]
     Active Substance: OMEPRAZOLE MAGNESIUM
  3. LEVOTHYROXINE. [Concomitant]
     Active Substance: LEVOTHYROXINE
  4. AFINITOR [Suspect]
     Active Substance: EVEROLIMUS
     Indication: BREAST CANCER
     Route: 048
     Dates: start: 20180517
  5. EXEMESTANE 25MG [Concomitant]
     Active Substance: EXEMESTANE
  6. VITAMIN B12 [Concomitant]
     Active Substance: CYANOCOBALAMIN
  7. TYLENOL [Concomitant]
     Active Substance: ACETAMINOPHEN
  8. SUMATRIPTAN. [Concomitant]
     Active Substance: SUMATRIPTAN
  9. CALCIUM [Concomitant]
     Active Substance: CALCIUM

REACTIONS (7)
  - Fatigue [None]
  - Myalgia [None]
  - Peripheral swelling [None]
  - Migraine [None]
  - Dyspnoea exertional [None]
  - Joint swelling [None]
  - Cough [None]

NARRATIVE: CASE EVENT DATE: 20180831
